FAERS Safety Report 4693482-1 (Version None)
Quarter: 2005Q2

REPORT INFORMATION
  Report Type: 
  Country: None (occurrence: None)
  Receive Date: 20050615
  Receipt Date: 20050606
  Transmission Date: 20051028
  Serious: Yes (Other)
  Sender: FDA-Public Use
  Company Number: 2005070959

PATIENT
  Age: 55 Year
  Sex: Female
  Weight: 85.2762 kg

DRUGS (13)
  1. CELEBREX [Suspect]
     Indication: FIBROMYALGIA
     Dosage: 400 MG (200 MG, 2 IN 1 D), ORAL
     Route: 048
     Dates: start: 20050401
  2. CELEBREX [Suspect]
     Indication: OSTEOARTHRITIS
     Dosage: 400 MG (200 MG, 2 IN 1 D), ORAL
     Route: 048
     Dates: start: 20050401
  3. CELEBREX [Suspect]
     Indication: RHEUMATOID ARTHRITIS
     Dosage: 400 MG (200 MG, 2 IN 1 D), ORAL
     Route: 048
     Dates: start: 20050401
  4. BEXTRA [Suspect]
     Indication: RHEUMATOID ARTHRITIS
     Dosage: 10 MG (10 MG, 1 IN 1 D), ORAL
     Route: 048
     Dates: start: 20040101
  5. NEURONTIN [Concomitant]
  6. SYNTHROID [Concomitant]
  7. KLONOPIN [Concomitant]
  8. TRAZODONE (TRAZODONE) [Concomitant]
  9. SINEMET [Concomitant]
  10. VITAMIN C (VITAMIN C) [Concomitant]
  11. ANTIBIOTICS (ANTIBIOTICS) [Concomitant]
  12. MULTIVITAMIN [Concomitant]
  13. EPIPEN (EPINEPHRINE) [Concomitant]

REACTIONS (9)
  - CONDITION AGGRAVATED [None]
  - DRUG INEFFECTIVE [None]
  - EYELID PTOSIS [None]
  - INSOMNIA [None]
  - NEOPLASM [None]
  - PAIN [None]
  - PHARMACEUTICAL PRODUCT COMPLAINT [None]
  - RETINOPATHY [None]
  - ROTATOR CUFF SYNDROME [None]
